FAERS Safety Report 16725458 (Version 1)
Quarter: 2019Q3

REPORT INFORMATION
  Report Type: Spontaneous
  Country: US (occurrence: US)
  Receive Date: 20190705
  Receipt Date: 20190705
  Transmission Date: 20191005
  Serious: Yes (Hospitalization)
  Sender: FDA-Public Use
  Company Number: None

PATIENT
  Sex: Female

DRUGS (2)
  1. NEULASTA [Suspect]
     Active Substance: PEGFILGRASTIM
     Indication: CHEMOTHERAPY
     Dosage: ?          OTHER DOSE:1 SYR;OTHER FREQUENCY:1 SSYR 24H AFTER Q 14 DAY;?
     Route: 058
     Dates: start: 20190620
  2. ONDANSETRON TAB [Concomitant]

REACTIONS (1)
  - Oncologic complication [None]
